FAERS Safety Report 8953369 (Version 1)
Quarter: 2012Q4

REPORT INFORMATION
  Report Type: Report from Study
  Country: CA (occurrence: CA)
  Receive Date: 20121206
  Receipt Date: 20121206
  Transmission Date: 20130627
  Serious: No
  Sender: FDA-Public Use
  Company Number: CA-JNJFOC-20121200797

PATIENT
  Sex: Female
  Weight: 61 kg

DRUGS (4)
  1. REMICADE [Suspect]
     Indication: COLITIS ULCERATIVE
     Route: 042
     Dates: start: 20120225
  2. BISOPROLOL [Concomitant]
     Route: 048
     Dates: start: 2009
  3. IMURAN [Concomitant]
     Route: 048
     Dates: start: 2012
  4. YASMIN [Concomitant]
     Route: 048
     Dates: start: 2008

REACTIONS (1)
  - Vulvovaginal mycotic infection [Recovered/Resolved]
